FAERS Safety Report 9699933 (Version 3)
Quarter: 2017Q3

REPORT INFORMATION
  Report Type: Report from Study
  Country: DE (occurrence: JP)
  Receive Date: 20131121
  Receipt Date: 20170803
  Transmission Date: 20171128
  Serious: Yes (Death, Other)
  Sender: FDA-Public Use
  Company Number: JP-ROCHE-583548

PATIENT

DRUGS (4)
  1. BENDAMUSTINE [Suspect]
     Active Substance: BENDAMUSTINE
     Indication: LYMPHOMA
     Dosage: GIVEN ON DAYS 1 AND 2 EVERY 28 DAYS.
     Route: 065
  2. RITUXIMAB. [Suspect]
     Active Substance: RITUXIMAB
     Indication: LYMPHOMA
     Dosage: GIVEN ON DAY 1 OF EVERY 28 DAYS.
     Route: 042
  3. BENDAMUSTINE [Suspect]
     Active Substance: BENDAMUSTINE
     Indication: MANTLE CELL LYMPHOMA
  4. RITUXIMAB. [Suspect]
     Active Substance: RITUXIMAB
     Indication: MANTLE CELL LYMPHOMA

REACTIONS (9)
  - Death [Fatal]
  - Leukopenia [Unknown]
  - Lymphopenia [Unknown]
  - Malignant neoplasm progression [Unknown]
  - Anaemia [Unknown]
  - Sepsis [Fatal]
  - Infection [Fatal]
  - Neutropenia [Unknown]
  - Thrombocytopenia [Unknown]
